FAERS Safety Report 9336889 (Version 3)
Quarter: 2014Q4

REPORT INFORMATION
  Report Type: Report from Study
  Country: JP (occurrence: JP)
  Receive Date: 20130607
  Receipt Date: 20141209
  Transmission Date: 20150529
  Serious: Yes (Death, Hospitalization)
  Sender: FDA-Public Use
  Company Number: JP-ROCHE-1231033

PATIENT
  Age: 96 Year
  Sex: Male

DRUGS (19)
  1. LASIX [Concomitant]
     Active Substance: FUROSEMIDE
     Route: 048
     Dates: start: 20130525, end: 20130607
  2. CRAVIT [Concomitant]
     Active Substance: LEVOFLOXACIN
     Indication: PROPHYLAXIS
     Route: 048
     Dates: start: 20120830, end: 20120830
  3. CRAVIT [Concomitant]
     Active Substance: LEVOFLOXACIN
     Indication: PROPHYLAXIS
     Route: 048
     Dates: start: 20120831, end: 20120903
  4. ALDACTONE [Concomitant]
     Active Substance: SPIRONOLACTONE
     Indication: NEPHROSCLEROSIS
     Route: 048
     Dates: start: 20130525, end: 20130607
  5. METHOXY POLYETHYLENE GLYCOL-EPOETIN BETA [Suspect]
     Active Substance: PEGZEREPOETIN ALFA
     Indication: NEPHROGENIC ANAEMIA
     Route: 058
     Dates: start: 20130305, end: 20130425
  6. FEBURIC [Concomitant]
     Active Substance: FEBUXOSTAT
     Route: 048
     Dates: end: 20121221
  7. URIEF [Concomitant]
     Active Substance: SILODOSIN
     Route: 048
     Dates: end: 20121221
  8. THYRADIN [Concomitant]
     Active Substance: LEVOTHYROXINE
     Route: 048
     Dates: end: 20121221
  9. MEMANTINE HYDROCHLORIDE [Concomitant]
     Active Substance: MEMANTINE HYDROCHLORIDE
     Dosage: DRUG REPORTED MEMARY
     Route: 048
     Dates: end: 20121221
  10. LENDORMIN D [Concomitant]
     Active Substance: BROTIZOLAM
     Route: 048
     Dates: end: 20121221
  11. DUTASTERIDE. [Concomitant]
     Active Substance: DUTASTERIDE
     Route: 048
     Dates: end: 20121221
  12. TAKEPRON [Concomitant]
     Active Substance: LANSOPRAZOLE
     Route: 048
     Dates: end: 20121221
  13. PURSENNID [Concomitant]
     Active Substance: SENNOSIDES A AND B
     Route: 048
     Dates: end: 20121221
  14. SODIUM BICARBONATE. [Concomitant]
     Active Substance: SODIUM BICARBONATE
     Dosage: DRUG REPORTED AS JUSO
     Route: 048
     Dates: start: 20120830, end: 20121221
  15. NU-LOTAN [Concomitant]
     Active Substance: LOSARTAN POTASSIUM
     Route: 048
     Dates: end: 20121221
  16. METHOXY POLYETHYLENE GLYCOL-EPOETIN BETA [Suspect]
     Active Substance: PEGZEREPOETIN ALFA
     Indication: NEPHROGENIC ANAEMIA
     Route: 058
     Dates: start: 20120830, end: 20121027
  17. LIVALO [Concomitant]
     Active Substance: PITAVASTATIN CALCIUM
     Route: 048
     Dates: end: 20121221
  18. METHOXY POLYETHYLENE GLYCOL-EPOETIN BETA [Suspect]
     Active Substance: PEGZEREPOETIN ALFA
     Indication: NEPHROGENIC ANAEMIA
     Route: 058
     Dates: start: 20130525, end: 20130525
  19. LASIX [Concomitant]
     Active Substance: FUROSEMIDE
     Indication: NEPHROSCLEROSIS
     Route: 048
     Dates: end: 20121221

REACTIONS (6)
  - Lung neoplasm malignant [Fatal]
  - Ureteric cancer [Fatal]
  - Bladder neoplasm [Recovering/Resolving]
  - Compression fracture [Recovered/Resolved]
  - Cystitis [Recovered/Resolved]
  - Fall [Unknown]

NARRATIVE: CASE EVENT DATE: 201211
